FAERS Safety Report 10645961 (Version 1)
Quarter: 2014Q4

REPORT INFORMATION
  Report Type: Spontaneous
  Country: GB (occurrence: GB)
  Receive Date: 20141211
  Receipt Date: 20141211
  Transmission Date: 20150529
  Serious: Yes (Hospitalization)
  Sender: FDA-Public Use
  Company Number: GB-APOTEX-2014AP006075

PATIENT
  Age: 63 Year
  Sex: Female

DRUGS (1)
  1. ALENDRONATE [Suspect]
     Active Substance: ALENDRONATE SODIUM
     Indication: OSTEOPOROSIS
     Dosage: UNK
     Route: 065

REACTIONS (5)
  - Fall [Recovering/Resolving]
  - Condition aggravated [Recovering/Resolving]
  - Joint instability [Recovering/Resolving]
  - Pelvic fracture [Recovering/Resolving]
  - Hip deformity [Recovering/Resolving]
